FAERS Safety Report 8255760 (Version 2)
Quarter: 2012Q4

REPORT INFORMATION
  Report Type: 
  Country: US (occurrence: US)
  Receive Date: 20111119
  Receipt Date: 20121130
  Transmission Date: 20130627
  Serious: Yes (Hospitalization)
  Sender: FDA-Public Use
  Company Number: US-ASTRAZENECA-2011SE68780

PATIENT
  Age: 76 Year
  Sex: Female

DRUGS (1)
  1. SYMBICORT PMDI [Suspect]
     Route: 055

REACTIONS (6)
  - Bronchitis [Unknown]
  - Laryngitis [Unknown]
  - Choking [Unknown]
  - Asthma [Unknown]
  - Multiple allergies [Unknown]
  - Cough [Unknown]
